FAERS Safety Report 15250977 (Version 1)
Quarter: 2018Q3

REPORT INFORMATION
  Report Type: Spontaneous
  Country: GB (occurrence: GB)
  Receive Date: 20180807
  Receipt Date: 20180807
  Transmission Date: 20181010
  Serious: Yes (Other)
  Sender: FDA-Public Use
  Company Number: GB-BAXTER-2018BAX020667

PATIENT
  Age: 31 Year
  Sex: Male

DRUGS (3)
  1. FENTANYL. [Concomitant]
     Active Substance: FENTANYL
     Indication: INDUCTION OF ANAESTHESIA
     Route: 065
  2. PROPOFOL. [Concomitant]
     Active Substance: PROPOFOL
     Indication: INDUCTION OF ANAESTHESIA
     Route: 065
  3. SEVOFLURANE BAXTER, 100% INHALATION VAPOUR, LIQUID [Suspect]
     Active Substance: SEVOFLURANE
     Indication: MAINTENANCE OF ANAESTHESIA
     Route: 055

REACTIONS (1)
  - Pulmonary alveolar haemorrhage [Recovering/Resolving]
